FAERS Safety Report 23210745 (Version 3)
Quarter: 2023Q4

REPORT INFORMATION
  Report Type: Report from Study
  Country: MX (occurrence: MX)
  Receive Date: 20231121
  Receipt Date: 20231213
  Transmission Date: 20240110
  Serious: Yes (Other)
  Sender: FDA-Public Use
  Company Number: MX-002147023-NVSC2023MX244574

PATIENT
  Sex: Female
  Weight: 80 kg

DRUGS (7)
  1. EXFORGE HCT [Suspect]
     Active Substance: AMLODIPINE BESYLATE\HYDROCHLOROTHIAZIDE\VALSARTAN
     Indication: Blood pressure abnormal
     Dosage: 1 DOSAGE FORM, QD (10/320/ 25MG)
     Route: 048
     Dates: start: 2022
  2. EXFORGE HCT [Suspect]
     Active Substance: AMLODIPINE BESYLATE\HYDROCHLOROTHIAZIDE\VALSARTAN
     Dosage: 0.5 DOSAGE FORM, QD (10/320/ 25MG)
     Route: 048
     Dates: start: 2022
  3. OMEGA 3 [Suspect]
     Active Substance: CAPSAICIN
     Indication: Product used for unknown indication
     Dosage: 1 DOSAGE FORM, BID
     Route: 048
     Dates: start: 2023
  4. OMEGA 3 [Suspect]
     Active Substance: CAPSAICIN
     Dosage: REDUCED DOSE TO ONLY 2 CAPSULES A WEEK
     Route: 048
  5. OMEGA 3 [Suspect]
     Active Substance: CAPSAICIN
     Dosage: 2 DOSAGE FORM, QW
     Route: 048
     Dates: start: 2023
  6. ESCITALOPRAM [Concomitant]
     Active Substance: ESCITALOPRAM OXALATE
     Indication: Systemic infection
     Dosage: (10MG) QD
     Route: 048
     Dates: start: 20231009
  7. MAGNESIUM [Concomitant]
     Active Substance: MAGNESIUM
     Indication: Sleep disorder
     Dosage: 1 DOSAGE FORM, QD
     Route: 048

REACTIONS (14)
  - Syncope [Recovered/Resolved]
  - Loss of consciousness [Recovered/Resolved]
  - Blood pressure decreased [Recovered/Resolved]
  - Vision blurred [Recovered/Resolved]
  - Photopsia [Unknown]
  - Tremor [Recovered/Resolved]
  - Inflammation [Not Recovered/Not Resolved]
  - Insomnia [Unknown]
  - Energy increased [Unknown]
  - Cardiac disorder [Not Recovered/Not Resolved]
  - Chest pain [Not Recovered/Not Resolved]
  - Infection [Unknown]
  - Incorrect dose administered [Unknown]
  - Overdose [Unknown]

NARRATIVE: CASE EVENT DATE: 20220101
